FAERS Safety Report 6439397-X (Version None)
Quarter: 2009Q4

REPORT INFORMATION
  Report Type: 
  Country: None (occurrence: None)
  Receive Date: 20091113
  Receipt Date: 20091109
  Transmission Date: 20100525
  Serious: Yes (Hospitalization, Other)
  Sender: FDA-Public Use
  Company Number: US-ELI_LILLY_AND_COMPANY-US200911002112

PATIENT
  Sex: Male

DRUGS (4)
  1. HUMULIN 70/30 [Suspect]
     Dosage: 50 U, EACH MORNING
     Dates: start: 19880101
  2. HUMULIN 70/30 [Suspect]
     Dosage: 45 U, EACH EVENING
     Dates: start: 19880101
  3. HUMULIN 70/30 [Suspect]
     Dosage: 50 U, EACH MORNING
     Dates: start: 19880101
  4. HUMULIN 70/30 [Suspect]
     Dosage: 45 U, EACH EVENING
     Dates: start: 19880101

REACTIONS (6)
  - BLINDNESS [None]
  - BLOOD GLUCOSE FLUCTUATION [None]
  - BLOOD GLUCOSE INCREASED [None]
  - BODY TEMPERATURE FLUCTUATION [None]
  - BODY TEMPERATURE INCREASED [None]
  - OEDEMA PERIPHERAL [None]
